FAERS Safety Report 13368892 (Version 1)
Quarter: 2017Q1

REPORT INFORMATION
  Report Type: Spontaneous
  Country: TR (occurrence: TR)
  Receive Date: 20170324
  Receipt Date: 20170324
  Transmission Date: 20170429
  Serious: Yes (Hospitalization, Other)
  Sender: FDA-Public Use
  Company Number: TR-LUPIN PHARMACEUTICALS INC.-2017-01293

PATIENT
  Age: 18 Year
  Sex: Female
  Weight: 61 kg

DRUGS (1)
  1. AMLODIPINE [Suspect]
     Active Substance: AMLODIPINE BESYLATE
     Indication: PRODUCT USED FOR UNKNOWN INDICATION
     Dosage: 400 MG, UNK
     Route: 065

REACTIONS (6)
  - Suicide attempt [Unknown]
  - Overdose [Unknown]
  - Pleural effusion [Recovered/Resolved]
  - Blood pressure decreased [Recovered/Resolved]
  - Toxicity to various agents [Unknown]
  - Sinus bradycardia [Recovered/Resolved]
